FAERS Safety Report 7762213-0 (Version None)
Quarter: 2011Q3

REPORT INFORMATION
  Report Type: 
  Country: None (occurrence: None)
  Receive Date: 20110920
  Receipt Date: 20110913
  Transmission Date: 20111222
  Serious: No
  Sender: FDA-Public Use
  Company Number: US-PFIZER INC-2011217269

PATIENT
  Sex: Male

DRUGS (1)
  1. RELISTOR [Suspect]
     Indication: GASTROINTESTINAL MOTILITY DISORDER
     Dosage: UNK
     Dates: start: 20110913

REACTIONS (1)
  - DRUG INEFFECTIVE [None]
